FAERS Safety Report 5535162-6 (Version None)
Quarter: 2007Q4

REPORT INFORMATION
  Report Type: 
  Country: None (occurrence: None)
  Receive Date: 20071206
  Receipt Date: 20071203
  Transmission Date: 20080405
  Serious: Yes (Hospitalization, Disabling)
  Sender: FDA-Public Use
  Company Number: PHRM2007FR02721

PATIENT
  Age: 54 Year
  Sex: Female

DRUGS (3)
  1. ZOMETA [Suspect]
     Indication: BREAST CANCER
     Dosage: 4 MG, TIW
     Dates: start: 20020101, end: 20051101
  2. CLASTOBAN [Suspect]
     Indication: BREAST CANCER
     Route: 042
     Dates: start: 19950101, end: 20020101
  3. ANTINEOPLASTIC AGENTS [Concomitant]
     Indication: BREAST CANCER
     Dates: start: 20051101

REACTIONS (6)
  - BIOPSY BONE ABNORMAL [None]
  - BONE DEBRIDEMENT [None]
  - IMPAIRED HEALING [None]
  - OSTEONECROSIS [None]
  - TOOTH EXTRACTION [None]
  - TOOTHACHE [None]
